FAERS Safety Report 4774182-6 (Version None)
Quarter: 2005Q3

REPORT INFORMATION
  Report Type: 
  Country: None (occurrence: None)
  Receive Date: 20050921
  Receipt Date: 20050919
  Transmission Date: 20060218
  Serious: Yes (Hospitalization)
  Sender: FDA-Public Use
  Company Number: AR-BOEHRINGER INGELHEIM PHARMACEUTICALS, INC.-2005-BP-16524RA

PATIENT
  Sex: Male
  Weight: 83.2 kg

DRUGS (1)
  1. TIPRANAVIR / RITONAVIR CAPSULES, SOFTGELATIN [Suspect]
     Indication: HIV INFECTION
     Route: 048
     Dates: start: 20040722

REACTIONS (2)
  - ANAL HAEMORRHAGE [None]
  - CONDYLOMA ACUMINATUM [None]
